FAERS Safety Report 7150263-7 (Version None)
Quarter: 2010Q4

REPORT INFORMATION
  Report Type: 
  Country: None (occurrence: None)
  Receive Date: 20101207
  Receipt Date: 20101207
  Transmission Date: 20110411
  Serious: Yes (Life-Threatening)
  Sender: FDA-Public Use
  Company Number: None

PATIENT
  Sex: Female
  Weight: 60 kg

DRUGS (2)
  1. HEPARIN SODIUM 25,000 UNITS AND DEXTROSE 5% [Suspect]
     Indication: DEEP VEIN THROMBOSIS
     Dosage: 500-2500UNITS/HR TITRATE IV
     Route: 042
     Dates: start: 20100413, end: 20100414
  2. ASPIRIN [Concomitant]

REACTIONS (5)
  - HAEMOGLOBIN DECREASED [None]
  - HYPOXIA [None]
  - MELAENA [None]
  - PULMONARY EMBOLISM [None]
  - RIGHT VENTRICULAR FAILURE [None]
